FAERS Safety Report 6120966-1 (Version None)
Quarter: 2009Q1

REPORT INFORMATION
  Report Type: 
  Country: None (occurrence: None)
  Receive Date: 20090312
  Receipt Date: 20090227
  Transmission Date: 20090719
  Serious: Yes (Hospitalization)
  Sender: FDA-Public Use
  Company Number: 1000003801

PATIENT
  Age: 58 Year
  Sex: Male

DRUGS (4)
  1. CITALOPRAM HYDROBROMIDE [Suspect]
     Indication: DEPRESSION
     Dosage: 20 MG (10 MG, 2 IN 1 D), ORAL
     Route: 048
  2. WARAN (TABLETS) [Suspect]
     Indication: ATRIAL FIBRILLATION
     Dosage: 2.5 MG (2.5 MG, 1 IN 1 ), ORAL
     Route: 048
  3. METOPROLOL [Concomitant]
  4. .. [Concomitant]

REACTIONS (2)
  - GASTRIC ULCER [None]
  - HAEMATEMESIS [None]
